FAERS Safety Report 4653280-1 (Version None)
Quarter: 2005Q2

REPORT INFORMATION
  Report Type: 
  Country: None (occurrence: None)
  Receive Date: 20050505
  Receipt Date: 20050309
  Transmission Date: 20051028
  Serious: Yes (Death)
  Sender: FDA-Public Use
  Company Number: GB-BOEHRINGER INGELHEIM PHARMACEUTICALS, INC.-2005-UK-00406UK

PATIENT
  Sex: Female

DRUGS (11)
  1. COMBIVENT [Suspect]
  2. BUDESONIDE [Suspect]
     Route: 055
  3. FRUSEMIDE [Suspect]
  4. CITALOPRAM [Suspect]
  5. RISEDRONATE SODIUM [Suspect]
  6. DONEPEZIL HCL [Suspect]
  7. QUINAPRIL [Suspect]
  8. OTRIRALOLACTIN [Suspect]
  9. PREDNISOLONE [Suspect]
  10. OLANZEPINE [Suspect]
  11. NOT RPEORTED [Concomitant]

REACTIONS (2)
  - CEREBROVASCULAR ACCIDENT [None]
  - DEMENTIA [None]
